FAERS Safety Report 8860419 (Version 2)
Quarter: 2012Q4

REPORT INFORMATION
  Report Type: 
  Country: FR (occurrence: FR)
  Receive Date: 20121025
  Receipt Date: 20121029
  Transmission Date: 20130627
  Serious: Yes (Other)
  Sender: FDA-Public Use
  Company Number: PHHY2012FR094702

PATIENT
  Sex: Male

DRUGS (1)
  1. TASIGNA [Suspect]
     Indication: CHRONIC MYELOID LEUKAEMIA
     Dosage: 600 mg, daily
     Route: 048

REACTIONS (4)
  - Intermittent claudication [Recovered/Resolved]
  - Aortic thrombosis [Recovered/Resolved]
  - Peripheral artery thrombosis [Recovered/Resolved]
  - Peripheral artery stenosis [Recovered/Resolved]
